FAERS Safety Report 4644169-2 (Version None)
Quarter: 2005Q2

REPORT INFORMATION
  Report Type: 
  Country: None (occurrence: None)
  Receive Date: 20050425
  Receipt Date: 20050418
  Transmission Date: 20051028
  Serious: Yes (Life-Threatening)
  Sender: FDA-Public Use
  Company Number: GR-GLAXOSMITHKLINE-B0378876A

PATIENT
  Age: 90 Year
  Sex: Male

DRUGS (2)
  1. PAROXETINE HCL [Suspect]
     Indication: DEPRESSION
     Route: 048
     Dates: start: 20050329, end: 20050418
  2. WARFARIN SODIUM [Concomitant]

REACTIONS (2)
  - NIGHTMARE [None]
  - SUICIDAL IDEATION [None]
